FAERS Safety Report 12393287 (Version 9)
Quarter: 2017Q1

REPORT INFORMATION
  Report Type: Spontaneous
  Country: CA (occurrence: CA)
  Receive Date: 20160523
  Receipt Date: 20170322
  Transmission Date: 20170428
  Serious: Yes (Other)
  Sender: FDA-Public Use
  Company Number: CA-ROCHE-1760565

PATIENT
  Age: 49 Year
  Sex: Female

DRUGS (15)
  1. XOLAIR [Suspect]
     Active Substance: OMALIZUMAB
     Route: 058
     Dates: start: 20150805
  2. AZITHROMYCIN ANHYDROUS. [Concomitant]
     Active Substance: AZITHROMYCIN ANHYDROUS
     Indication: PRODUCT USED FOR UNKNOWN INDICATION
     Route: 065
  3. XOLAIR [Suspect]
     Active Substance: OMALIZUMAB
     Route: 058
     Dates: start: 20150513
  4. XOLAIR [Suspect]
     Active Substance: OMALIZUMAB
     Route: 058
     Dates: start: 20150708
  5. XOLAIR [Suspect]
     Active Substance: OMALIZUMAB
     Route: 058
     Dates: start: 20160511
  6. XOLAIR [Suspect]
     Active Substance: OMALIZUMAB
     Route: 058
     Dates: start: 20160706
  7. XOLAIR [Suspect]
     Active Substance: OMALIZUMAB
     Route: 058
     Dates: start: 20161222
  8. XOLAIR [Suspect]
     Active Substance: OMALIZUMAB
     Route: 058
     Dates: start: 20170217
  9. AZITHROMYCIN ANHYDROUS. [Concomitant]
     Active Substance: AZITHROMYCIN ANHYDROUS
     Route: 065
  10. XOLAIR [Suspect]
     Active Substance: OMALIZUMAB
     Route: 058
     Dates: start: 20160315
  11. XOLAIR [Suspect]
     Active Substance: OMALIZUMAB
     Route: 058
     Dates: start: 20150415
  12. XOLAIR [Suspect]
     Active Substance: OMALIZUMAB
     Route: 058
     Dates: start: 20160608
  13. XOLAIR [Suspect]
     Active Substance: OMALIZUMAB
     Route: 058
     Dates: start: 20161121
  14. XOLAIR [Suspect]
     Active Substance: OMALIZUMAB
     Indication: ASTHMA
     Route: 058
     Dates: start: 20150317
  15. XOLAIR [Suspect]
     Active Substance: OMALIZUMAB
     Route: 058
     Dates: start: 20160831

REACTIONS (40)
  - Lung infection [Unknown]
  - Chills [Recovering/Resolving]
  - Choking [Unknown]
  - Ocular hyperaemia [Recovering/Resolving]
  - Asthma [Recovering/Resolving]
  - Weight increased [Unknown]
  - Eye haemorrhage [Unknown]
  - Dysphagia [Recovering/Resolving]
  - Bronchial secretion retention [Unknown]
  - Body temperature decreased [Unknown]
  - Dry throat [Unknown]
  - Gastroenteritis viral [Recovered/Resolved]
  - Respiratory disorder [Unknown]
  - Fatigue [Unknown]
  - Urinary tract infection [Unknown]
  - Fungal skin infection [Not Recovered/Not Resolved]
  - Respiratory disorder [Unknown]
  - Blood pressure increased [Unknown]
  - Malaise [Not Recovered/Not Resolved]
  - Insomnia [Unknown]
  - Abdominal pain [Not Recovered/Not Resolved]
  - Oropharyngeal pain [Recovering/Resolving]
  - Cough [Recovering/Resolving]
  - Wheezing [Unknown]
  - Influenza [Recovering/Resolving]
  - Oral mucosal blistering [Recovering/Resolving]
  - Dyspnoea [Recovering/Resolving]
  - Nasopharyngitis [Unknown]
  - Bronchitis [Recovering/Resolving]
  - Sputum discoloured [Unknown]
  - Hyperhidrosis [Recovering/Resolving]
  - Blood pressure systolic decreased [Unknown]
  - Respiratory tract congestion [Unknown]
  - Dysphonia [Unknown]
  - Food allergy [Recovering/Resolving]
  - Productive cough [Unknown]
  - Sinus congestion [Recovering/Resolving]
  - Pharyngeal oedema [Unknown]
  - Chest discomfort [Unknown]
  - Asthenia [Recovering/Resolving]

NARRATIVE: CASE EVENT DATE: 20150414
